FAERS Safety Report 25105955 (Version 4)
Quarter: 2025Q2

REPORT INFORMATION
  Report Type: Report from Study
  Country: US (occurrence: US)
  Receive Date: 20250321
  Receipt Date: 20250502
  Transmission Date: 20250716
  Serious: No
  Sender: ACADIA PHARMACEUTICALS
  Company Number: US-ACADIA PHARMACEUTICALS INC.-ACA-2025-TRF-003184

PATIENT
  Age: 12 Year
  Sex: Female
  Weight: 34.014 kg

DRUGS (11)
  1. DAYBUE [Suspect]
     Active Substance: TROFINETIDE
     Indication: Rett syndrome
     Route: 065
  2. DAYBUE [Suspect]
     Active Substance: TROFINETIDE
     Dosage: 40 MILLILITER, BID
     Route: 048
     Dates: start: 20240814
  3. CALCIUM [Concomitant]
     Active Substance: CALCIUM
     Dosage: 0.5 DOSAGE FORM (1/2 TABLET), BID
  4. MELATONIN [Concomitant]
     Active Substance: MELATONIN
  5. MIRALAX [Concomitant]
     Active Substance: POLYETHYLENE GLYCOL 3350
  6. POTASSIUM CITRATE [Concomitant]
     Active Substance: POTASSIUM CITRATE
     Dosage: 2 DOSAGE FORM (TABLETS), BID
  7. SENNA LEAF [Concomitant]
     Active Substance: SENNA LEAF
  8. ZYRTEC [Concomitant]
     Active Substance: CETIRIZINE HYDROCHLORIDE
  9. LEVOCARNITINE [Concomitant]
     Active Substance: LEVOCARNITINE
     Dosage: 330 MILLIGRAM, TID
  10. PHOSPHA 250 NEUTRAL [Concomitant]
     Active Substance: POTASSIUM PHOSPHATE, MONOBASIC\SODIUM PHOSPHATE, DIBASIC, ANHYDROUS\SODIUM PHOSPHATE, MONOBASIC, MON
  11. ZANTAC 75 [Concomitant]
     Active Substance: RANITIDINE HYDROCHLORIDE
     Dosage: UNK, BID

REACTIONS (2)
  - Product use complaint [Recovering/Resolving]
  - Incorrect dose administered [Unknown]

NARRATIVE: CASE EVENT DATE: 20240814
